FAERS Safety Report 16401946 (Version 2)
Quarter: 2019Q2

REPORT INFORMATION
  Report Type: Spontaneous
  Country: US (occurrence: US)
  Receive Date: 20190607
  Receipt Date: 20190613
  Transmission Date: 20190711
  Serious: No
  Sender: FDA-Public Use
  Company Number: US-GLAXOSMITHKLINE-US2019100106

PATIENT
  Age: 69 Year
  Sex: Female

DRUGS (1)
  1. FLOVENT [Suspect]
     Active Substance: FLUTICASONE PROPIONATE
     Indication: COUGH
     Dosage: 2 PUFF(S), BID
     Route: 065
     Dates: start: 20190529, end: 20190602

REACTIONS (7)
  - Sinus pain [Not Recovered/Not Resolved]
  - Adverse drug reaction [Unknown]
  - Aphonia [Not Recovered/Not Resolved]
  - Dysphonia [Not Recovered/Not Resolved]
  - Condition aggravated [Unknown]
  - Cough [Not Recovered/Not Resolved]
  - Throat irritation [Not Recovered/Not Resolved]

NARRATIVE: CASE EVENT DATE: 20190531
